FAERS Safety Report 19698372 (Version 1)
Quarter: 2021Q3

REPORT INFORMATION
  Report Type: Spontaneous
  Country: US (occurrence: US)
  Receive Date: 20210813
  Receipt Date: 20210813
  Transmission Date: 20211014
  Serious: No
  Sender: FDA-Public Use
  Company Number: None

PATIENT
  Age: 64 Year
  Sex: Female
  Weight: 94.5 kg

DRUGS (11)
  1. REGEN?COV [Suspect]
     Active Substance: CASIRIVIMAB\IMDEVIMAB
     Indication: COVID-19
     Dosage: ?          QUANTITY:1 260 ML;?
     Route: 042
     Dates: start: 20210812, end: 20210812
  2. LOSARTAN. [Concomitant]
     Active Substance: LOSARTAN
  3. ARIMIDEX [Concomitant]
     Active Substance: ANASTROZOLE
  4. ZINC. [Concomitant]
     Active Substance: ZINC
  5. LEVOTHYROXINE. [Concomitant]
     Active Substance: LEVOTHYROXINE
  6. VITAMINS B12 [Concomitant]
  7. GLIMEPIRIDE. [Concomitant]
     Active Substance: GLIMEPIRIDE
  8. ROSUVASTATIN. [Concomitant]
     Active Substance: ROSUVASTATIN
  9. IRON [Concomitant]
     Active Substance: IRON
  10. METFORMIN [Concomitant]
     Active Substance: METFORMIN HYDROCHLORIDE
  11. D [Concomitant]

REACTIONS (7)
  - Nausea [None]
  - Cold sweat [None]
  - Decreased appetite [None]
  - Asthenia [None]
  - Chills [None]
  - Pyrexia [None]
  - Malaise [None]

NARRATIVE: CASE EVENT DATE: 20210812
